FAERS Safety Report 4320314-3 (Version None)
Quarter: 2004Q1

REPORT INFORMATION
  Report Type: 
  Country: None (occurrence: None)
  Receive Date: 20040317
  Receipt Date: 20040303
  Transmission Date: 20041129
  Serious: Yes (Hospitalization)
  Sender: FDA-Public Use
  Company Number: 204793

PATIENT
  Age: 32 Year
  Sex: Male
  Weight: 49 kg

DRUGS (6)
  1. RITUXAN [Suspect]
     Indication: DIFFUSE LARGE B-CELL LYMPHOMA
     Dosage: 600 MG, INTRAVENOUS
     Route: 042
     Dates: start: 20031010
  2. CYCLOPHOSPHAMIDE [Concomitant]
  3. DOXORUBICIN HCL [Concomitant]
  4. VINCRISTINE [Concomitant]
  5. STAVUDINE (STAVUDINE) [Concomitant]
  6. LAMIVUDINE (LAMIVUDINE) [Concomitant]

REACTIONS (1)
  - DEAFNESS NEUROSENSORY [None]
